FAERS Safety Report 5520286-X (Version None)
Quarter: 2007Q4

REPORT INFORMATION
  Report Type: 
  Country: None (occurrence: None)
  Receive Date: 20071119
  Receipt Date: 20071112
  Transmission Date: 20080405
  Serious: Yes (Death)
  Sender: FDA-Public Use
  Company Number: DE-JNJFOC-20071104801

PATIENT
  Sex: Female

DRUGS (1)
  1. REOPRO [Suspect]
     Indication: ACUTE MYOCARDIAL INFARCTION

REACTIONS (5)
  - ARTERIOSPASM CORONARY [None]
  - CARDIOGENIC SHOCK [None]
  - CATHETER SITE HAEMORRHAGE [None]
  - CORONARY ARTERY STENOSIS [None]
  - DEATH [None]
